FAERS Safety Report 4697973-9 (Version None)
Quarter: 2005Q2

REPORT INFORMATION
  Report Type: 
  Country: None (occurrence: None)
  Receive Date: 20050621
  Receipt Date: 20050606
  Transmission Date: 20051028
  Serious: Yes (Other)
  Sender: FDA-Public Use
  Company Number: USA050597759

PATIENT
  Age: 58 Year
  Sex: Female
  Weight: 51 kg

DRUGS (4)
  1. FORTEO [Suspect]
     Indication: OSTEOPOROSIS
     Dosage: 20 UG DAY
     Dates: start: 20041001
  2. ZOCOR [Concomitant]
  3. FLEXERIL [Concomitant]
  4. TRAZADONE (TRAZODONE) [Concomitant]

REACTIONS (3)
  - ANTINUCLEAR ANTIBODY POSITIVE [None]
  - BLOOD HUMAN CHORIONIC GONADOTROPIN POSITIVE [None]
  - HIV ANTIBODY POSITIVE [None]
